FAERS Safety Report 4576533-4 (Version None)
Quarter: 2005Q1

REPORT INFORMATION
  Report Type: 
  Country: None (occurrence: None)
  Receive Date: 20050119
  Receipt Date: 20040506
  Transmission Date: 20050727
  Serious: Yes (Other)
  Sender: FDA-Public Use
  Company Number: A03200401445

PATIENT

DRUGS (2)
  1. PLAVIX [Suspect]
     Indication: CORONARY ARTERIAL STENT INSERTION
     Dosage: ORAL
     Route: 048
     Dates: start: 20040101
  2. PLAVIX [Suspect]
     Indication: POSTOPERATIVE CARE
     Dosage: ORAL
     Route: 048
     Dates: start: 20040101

REACTIONS (1)
  - ANGIONEUROTIC OEDEMA [None]
